FAERS Safety Report 6221465-9 (Version None)
Quarter: 2009Q2

REPORT INFORMATION
  Report Type: 
  Country: None (occurrence: None)
  Receive Date: 20090610
  Receipt Date: 20090601
  Transmission Date: 20091009
  Serious: Yes (Hospitalization)
  Sender: FDA-Public Use
  Company Number: JP-B.I. PHARMACEUTICALS,INC./RIDGEFIELD-2009-BP-06620NB

PATIENT
  Age: 81 Year
  Sex: Male

DRUGS (3)
  1. PRAMIPEXOLE DIHYDROCHLORIDE [Suspect]
     Indication: PARKINSON'S DISEASE
     Dosage: .5MG
     Route: 048
     Dates: start: 20081031
  2. NEODOPASOL [Concomitant]
     Indication: PARKINSON'S DISEASE
     Dosage: 400MG
     Route: 048
     Dates: start: 20080702
  3. SELEGILINE HCL [Concomitant]
     Indication: PARKINSON'S DISEASE
     Dosage: 2.5MG
     Route: 048
     Dates: start: 20080702

REACTIONS (2)
  - FACIAL BONES FRACTURE [None]
  - FALL [None]
